FAERS Safety Report 16965245 (Version 1)
Quarter: 2019Q4

REPORT INFORMATION
  Report Type: Spontaneous
  Country: US (occurrence: US)
  Receive Date: 20191028
  Receipt Date: 20191028
  Transmission Date: 20200122
  Serious: No
  Sender: FDA-Public Use
  Company Number: US-CELGENEUS-USA-20191007834

PATIENT
  Sex: Female

DRUGS (1)
  1. OTEZLA [Suspect]
     Active Substance: APREMILAST
     Indication: PSORIASIS
     Dosage: 60 MILLIGRAM
     Route: 048
     Dates: start: 20191002

REACTIONS (8)
  - Frequent bowel movements [Unknown]
  - Psoriasis [Unknown]
  - Insomnia [Unknown]
  - Rhinorrhoea [Unknown]
  - Head injury [Unknown]
  - Nausea [Unknown]
  - Nasal congestion [Unknown]
  - Headache [Recovered/Resolved]

NARRATIVE: CASE EVENT DATE: 2019
